FAERS Safety Report 8120268-8 (Version None)
Quarter: 2012Q1

REPORT INFORMATION
  Report Type: 
  Country: None (occurrence: None)
  Receive Date: 20120207
  Receipt Date: 20120130
  Transmission Date: 20120608
  Serious: Yes (Hospitalization, Other)
  Sender: FDA-Public Use
  Company Number: CA-ABBOTT-11P-028-0706258-00

PATIENT
  Sex: Female
  Weight: 80.812 kg

DRUGS (14)
  1. HUMIRA [Suspect]
     Route: 058
     Dates: start: 20111018
  2. TYLENOL W/ CODEINE NO. 3 [Concomitant]
     Indication: PAIN
     Route: 048
     Dates: start: 20101120
  3. DOCUSATE [Concomitant]
     Indication: CONSTIPATION PROPHYLAXIS
     Dosage: AS REQUIRED
     Route: 048
     Dates: start: 20100601
  4. HUMIRA [Suspect]
     Indication: PSORIATIC ARTHROPATHY
     Route: 058
     Dates: start: 20101215, end: 20110918
  5. DICLOFENAC SODIUM [Concomitant]
     Indication: ANTIINFLAMMATORY THERAPY
     Route: 048
     Dates: start: 20100901
  6. FOLIC ACID [Concomitant]
     Indication: VITAMIN SUPPLEMENTATION
     Route: 048
     Dates: start: 20100901
  7. LEFLUNOMIDE [Concomitant]
     Indication: ANTIINFLAMMATORY THERAPY
     Route: 048
     Dates: start: 20100901
  8. OXYCODONE HCL [Concomitant]
     Indication: PAIN
     Dosage: 2 Q 6HOURS AS REQUIRED
     Route: 048
     Dates: start: 20101203
  9. SENOKOT [Concomitant]
     Indication: CONSTIPATION PROPHYLAXIS
     Dosage: AS REQUIRED
     Route: 048
     Dates: start: 20101201
  10. PREDNISONE [Concomitant]
     Indication: RASH
     Dosage: 6 / DAY FOR 4 DAYS
     Route: 048
     Dates: start: 20110215, end: 20110219
  11. HYDROCHLOROTHIAZIDE [Concomitant]
     Indication: ARTHRITIS
     Route: 048
     Dates: start: 20090101
  12. PREDNISONE [Concomitant]
     Indication: HYPERHIDROSIS
  13. PANTOPRAZOLE [Suspect]
     Indication: GASTRIC DISORDER
  14. CELEBREX [Concomitant]
     Indication: ARTHRALGIA
     Route: 048
     Dates: start: 20110802

REACTIONS (6)
  - OSTEOARTHRITIS [None]
  - FEELING HOT [None]
  - HYPERHIDROSIS [None]
  - HEADACHE [None]
  - RASH GENERALISED [None]
  - RASH PRURITIC [None]
